FAERS Safety Report 4456345-2 (Version None)
Quarter: 2004Q3

REPORT INFORMATION
  Report Type: 
  Country: None (occurrence: None)
  Receive Date: 20040917
  Receipt Date: 20040903
  Transmission Date: 20050211
  Serious: No
  Sender: FDA-Public Use
  Company Number: 2004GB00183

PATIENT
  Age: 61 Year
  Sex: Female

DRUGS (7)
  1. ACCOLATE [Suspect]
     Indication: ASTHMA
     Dosage: 20 MG BID PO
     Route: 048
     Dates: start: 19990401, end: 20040622
  2. ACCOLATE [Suspect]
     Indication: HEREDITARY DISORDER
     Dosage: 20 MG BID PO
     Route: 048
     Dates: start: 19990401, end: 20040622
  3. ASPIRIN [Concomitant]
  4. NIFEDIPINE [Concomitant]
  5. TERBUTALINE [Concomitant]
  6. OXAZEPAM [Concomitant]
  7. LANSOPRAZOLE [Concomitant]

REACTIONS (13)
  - ASTHENIA [None]
  - CHEST PAIN [None]
  - CONDITION AGGRAVATED [None]
  - DYSURIA [None]
  - FEELING ABNORMAL [None]
  - FIBROMYALGIA [None]
  - HYPOAESTHESIA [None]
  - JOINT SWELLING [None]
  - LOCALISED OSTEOARTHRITIS [None]
  - MYALGIA [None]
  - OEDEMA PERIPHERAL [None]
  - PARAESTHESIA [None]
  - SINUS DISORDER [None]
